FAERS Safety Report 20088165 (Version 1)
Quarter: 2021Q4

REPORT INFORMATION
  Report Type: Spontaneous
  Country: US (occurrence: US)
  Receive Date: 20211118
  Receipt Date: 20211118
  Transmission Date: 20220303
  Serious: No
  Sender: FDA-Public Use
  Company Number: US-3MMEDICAL-2021-US-025042

PATIENT
  Age: 58 Year
  Sex: Female
  Weight: 58.7 kg

DRUGS (2)
  1. DURAPREP [Suspect]
     Active Substance: IODINE POVACRYLEX\ISOPROPYL ALCOHOL
     Indication: Preoperative care
     Dosage: 26 ML SINGLE DOSE
     Route: 061
     Dates: start: 20210629, end: 20210629
  2. 3M Steri-Strip Elastic Skin Closures, E4547 [Concomitant]

REACTIONS (1)
  - Blister [Unknown]

NARRATIVE: CASE EVENT DATE: 20210629
